FAERS Safety Report 6510153-7 (Version None)
Quarter: 2009Q4

REPORT INFORMATION
  Report Type: 
  Country: None (occurrence: None)
  Receive Date: 20091217
  Receipt Date: 20091203
  Transmission Date: 20100525
  Serious: No
  Sender: FDA-Public Use
  Company Number: 008239

PATIENT

DRUGS (3)
  1. PLETAL [Suspect]
     Dosage: ORAL
     Route: 048
  2. RACOL (PROTEINS, AMINO ACID AND PREPARATIONS) [Concomitant]
  3. PLAS-AMINO (MIXED AMINO ACIDS PREPARATIONS (WITH GLUCOSE)) [Concomitant]

REACTIONS (1)
  - RHABDOMYOLYSIS [None]
